FAERS Safety Report 8427788-7 (Version None)
Quarter: 2012Q2

REPORT INFORMATION
  Report Type: 
  Country: None (occurrence: None)
  Receive Date: 20120611
  Receipt Date: 20120601
  Transmission Date: 20120825
  Serious: Yes (Other)
  Sender: FDA-Public Use
  Company Number: US-BAXTER-2012BAX006758

PATIENT
  Sex: Male

DRUGS (4)
  1. GAMMAGARD LIQUID [Suspect]
     Route: 042
     Dates: start: 20120529, end: 20120529
  2. GLASSIA [Suspect]
  3. GAMMAGARD LIQUID [Suspect]
     Route: 042
     Dates: start: 20120521, end: 20120521
  4. GAMMAGARD LIQUID [Suspect]
     Route: 042

REACTIONS (7)
  - BLOOD PRESSURE INCREASED [None]
  - PRODUCTIVE COUGH [None]
  - SINUSITIS [None]
  - MALAISE [None]
  - PYREXIA [None]
  - CHILLS [None]
  - TREMOR [None]
